FAERS Safety Report 12224604 (Version 2)
Quarter: 2016Q2

REPORT INFORMATION
  Report Type: Spontaneous
  Country: US (occurrence: US)
  Receive Date: 20160331
  Receipt Date: 20160618
  Transmission Date: 20160815
  Serious: Yes (Other)
  Sender: FDA-Public Use
  Company Number: US-AUROBINDO-AUR-APL-2016-03856

PATIENT

DRUGS (3)
  1. OLANZAPINE. [Concomitant]
     Active Substance: OLANZAPINE
     Indication: PRODUCT USED FOR UNKNOWN INDICATION
     Dosage: UNK
     Route: 065
  2. METHYLPREDNISOLONE SODIUM SUCCINATE. [Concomitant]
     Active Substance: METHYLPREDNISOLONE SODIUM SUCCINATE
     Indication: SEIZURE
     Dosage: UNK
     Route: 065
  3. LEVETIRACETAM. [Suspect]
     Active Substance: LEVETIRACETAM
     Indication: SEIZURE
     Dosage: UNK
     Route: 065

REACTIONS (10)
  - Memory impairment [Unknown]
  - Confusional state [Unknown]
  - Hepatic encephalopathy [Unknown]
  - Hepatic enzyme increased [Unknown]
  - Disturbance in attention [Unknown]
  - Hepatic failure [Unknown]
  - Jaundice [Unknown]
  - Nausea [Unknown]
  - Vomiting [Unknown]
  - Diarrhoea [Unknown]
